FAERS Safety Report 8206659-5 (Version None)
Quarter: 2012Q1

REPORT INFORMATION
  Report Type: 
  Country: None (occurrence: None)
  Receive Date: 20120314
  Receipt Date: 20120307
  Transmission Date: 20120608
  Serious: Yes (Hospitalization)
  Sender: FDA-Public Use
  Company Number: AR-BIOGENIDEC-2012BI008549

PATIENT
  Age: 55 Year
  Sex: Male

DRUGS (2)
  1. LIORESAL [Concomitant]
     Indication: MULTIPLE SCLEROSIS
     Route: 048
  2. AVONEX [Suspect]
     Indication: MULTIPLE SCLEROSIS
     Route: 030
     Dates: start: 20050101

REACTIONS (1)
  - ACUTE MYOCARDIAL INFARCTION [None]
